FAERS Safety Report 4548933-X (Version None)
Quarter: 2004Q4

REPORT INFORMATION
  Report Type: 
  Country: None (occurrence: None)
  Receive Date: 20041227
  Receipt Date: 20040902
  Transmission Date: 20050328
  Serious: No
  Sender: FDA-Public Use
  Company Number: 04P-163-0272426-00

PATIENT
  Age: 72 Year
  Sex: Female
  Weight: 99.7913 kg

DRUGS (12)
  1. HUMIRA [Suspect]
     Indication: RHEUMATOID ARTHRITIS
     Dosage: 40 MG, 1 IN 2 WK, SUBCUTANEOUS
     Route: 058
     Dates: start: 20040601
  2. BUPROPION HYDROCHLORIDE [Concomitant]
  3. OMEPRAZOLE [Concomitant]
  4. PREDNISONE [Concomitant]
  5. WARFARIN SODIUM [Concomitant]
  6. FOLIC ACID [Concomitant]
  7. POTASSIUM [Concomitant]
  8. ATORVASTATIN [Concomitant]
  9. METHOTREXATE [Concomitant]
  10. SULTOPRIDE [Concomitant]
  11. VERAPAMIL HYDROCHLORIDE [Concomitant]
  12. TRIAZADONE [Concomitant]

REACTIONS (1)
  - INJECTION SITE BURNING [None]
